FAERS Safety Report 23075177 (Version 2)
Quarter: 2024Q2

REPORT INFORMATION
  Report Type: Spontaneous
  Country: US (occurrence: US)
  Receive Date: 20231017
  Receipt Date: 20240507
  Transmission Date: 20240716
  Serious: No
  Sender: FDA-Public Use
  Company Number: US-ABBVIE-5450349

PATIENT
  Age: 20 Year
  Sex: Female

DRUGS (2)
  1. LILETTA [Suspect]
     Active Substance: LEVONORGESTREL
     Indication: Product used for unknown indication
     Dosage: TIME INTERVAL: AS NECESSARY: FORM STRENGTH-LEVONORGESTREL 52MG IUD
     Route: 015
     Dates: start: 20230623
  2. LILETTA [Suspect]
     Active Substance: LEVONORGESTREL
     Dosage: TIME INTERVAL: AS NECESSARY: FORM STRENGTH-LEVONORGESTREL 52MG IUD
     Route: 015
     Dates: start: 20230919

REACTIONS (2)
  - Unintentional medical device removal [Unknown]
  - Device dislocation [Unknown]

NARRATIVE: CASE EVENT DATE: 20230919
